FAERS Safety Report 11806364 (Version 2)
Quarter: 2017Q2

REPORT INFORMATION
  Report Type: Report from Study
  Country: CN (occurrence: CN)
  Receive Date: 20151207
  Receipt Date: 20170426
  Transmission Date: 20170829
  Serious: No
  Sender: FDA-Public Use
  Company Number: PHHY2015CN156712

PATIENT
  Age: 46 Year
  Sex: Male

DRUGS (1)
  1. MYFORTIC [Suspect]
     Active Substance: MYCOPHENOLATE SODIUM
     Indication: RENAL TRANSPLANT
     Dosage: UNK
     Route: 065

REACTIONS (2)
  - Incision site pain [Recovered/Resolved]
  - Haemoglobin decreased [Unknown]

NARRATIVE: CASE EVENT DATE: 20151105
